FAERS Safety Report 8988448 (Version 1)
Quarter: 2012Q4

REPORT INFORMATION
  Report Type: Spontaneous
  Country: US (occurrence: None)
  Receive Date: 20121221
  Receipt Date: 20121221
  Transmission Date: 20130627
  Serious: Yes (Hospitalization)
  Sender: FDA-Public Use
  Company Number: None

PATIENT
  Age: 93 Year
  Sex: Male
  Weight: 83.4 kg

DRUGS (2)
  1. DONEPEZIL [Suspect]
     Indication: DEMENTIA
     Dosage: 10 MG EVERY DAY PO
     Route: 048
     Dates: start: 20121019, end: 20121109
  2. METOPROLOL [Suspect]
     Indication: HYPERTENSION
     Dosage: MG BID PO
     Route: 048

REACTIONS (5)
  - Syncope [None]
  - Dizziness [None]
  - Hypophagia [None]
  - Aortic stenosis [None]
  - Condition aggravated [None]
